FAERS Safety Report 25904313 (Version 2)
Quarter: 2025Q4

REPORT INFORMATION
  Report Type: Report from Study
  Country: US (occurrence: US)
  Receive Date: 20251010
  Receipt Date: 20251117
  Transmission Date: 20260117
  Serious: Yes (Hospitalization, Other)
  Sender: IDORSIA PHARMACEUTICALS
  Company Number: US-IDORSIA-011981-2025-US

PATIENT
  Age: 79 Year
  Sex: Female

DRUGS (1)
  1. QUVIVIQ [Suspect]
     Active Substance: DARIDOREXANT
     Indication: Insomnia
     Dosage: 50 MG, QD
     Route: 048
     Dates: start: 20240926

REACTIONS (4)
  - Non-small cell lung cancer [Not Recovered/Not Resolved]
  - Pulmonary mass [Recovered/Resolved]
  - Pneumothorax [Recovered/Resolved]
  - Dyspnoea [Recovered/Resolved]

NARRATIVE: CASE EVENT DATE: 20250919
